FAERS Safety Report 8128905-9 (Version None)
Quarter: 2012Q1

REPORT INFORMATION
  Report Type: 
  Country: None (occurrence: None)
  Receive Date: 20120210
  Receipt Date: 20110506
  Transmission Date: 20120608
  Serious: Yes (Hospitalization)
  Sender: FDA-Public Use
  Company Number: US-BRISTOL-MYERS SQUIBB COMPANY-15724891

PATIENT
  Age: 5 Decade
  Sex: Female

DRUGS (1)
  1. ORENCIA [Suspect]
     Dosage: SKIPPED IN JAN 2011;RESTARTED ON MAR2011
     Dates: start: 20101001, end: 20110101

REACTIONS (5)
  - BACTERIAL INFECTION [None]
  - INFECTION [None]
  - BREAST MASS [None]
  - NECK PAIN [None]
  - OROPHARYNGEAL PAIN [None]
